FAERS Safety Report 7064827-2 (Version None)
Quarter: 2010Q4

REPORT INFORMATION
  Report Type: 
  Country: None (occurrence: None)
  Receive Date: 20101027
  Receipt Date: 19880108
  Transmission Date: 20110411
  Serious: Yes (Death)
  Sender: FDA-Public Use
  Company Number: US-ROCHE-880200046001

PATIENT
  Age: 54 Year
  Sex: Male
  Weight: 63.5 kg

DRUGS (2)
  1. ISOTRETINOIN [Suspect]
     Route: 048
     Dates: start: 19871117, end: 19880324
  2. CORTICOSTEROID NOS [Suspect]
     Route: 065

REACTIONS (2)
  - ABNORMAL BEHAVIOUR [None]
  - SEPTIC SHOCK [None]
